FAERS Safety Report 21717348 (Version 1)
Quarter: 2022Q4

REPORT INFORMATION
  Report Type: Report from Study
  Country: CN (occurrence: CN)
  Receive Date: 20221212
  Receipt Date: 20221212
  Transmission Date: 20230112
  Serious: Yes (Hospitalization)
  Sender: FDA-Public Use
  Company Number: CN-BRISTOL-MYERS SQUIBB COMPANY-2022-148134

PATIENT
  Age: 75 Year
  Sex: Male
  Weight: 46 kg

DRUGS (11)
  1. PACLITAXEL [Suspect]
     Active Substance: PACLITAXEL
     Indication: Non-small cell lung cancer
     Dosage: RECENT DOSE WAS ON 10-NOV-2022
     Dates: start: 20220928
  2. CARBOPLATIN [Suspect]
     Active Substance: CARBOPLATIN
     Indication: Non-small cell lung cancer
     Dosage: RECENT DOSE (355 MG) ON 10-NOV-2022
     Dates: start: 20220928
  3. DEXAMETHASONE ACETATE [Concomitant]
     Active Substance: DEXAMETHASONE ACETATE
     Route: 048
     Dates: start: 20221129, end: 20221202
  4. DAPAGLIFLOZIN [Concomitant]
     Active Substance: DAPAGLIFLOZIN
     Route: 048
     Dates: start: 202208
  5. PALONOSETRON HYDROCHLORIDE [Concomitant]
     Active Substance: PALONOSETRON HYDROCHLORIDE
     Route: 042
     Dates: start: 20221202, end: 20221203
  6. METFORMIN HYDROCHLORIDE [Concomitant]
     Active Substance: METFORMIN HYDROCHLORIDE
     Route: 048
     Dates: start: 202208
  7. ACARBOSE [Concomitant]
     Active Substance: ACARBOSE
     Route: 048
     Dates: start: 202208
  8. 5% Sodium Bicabonate [Concomitant]
     Dosage: 1 DOSAGE FORM= 125 UNITS NOS
     Route: 042
     Dates: start: 20221202, end: 20221202
  9. ORNITHINE ASPARTATE [Concomitant]
     Active Substance: ORNITHINE ASPARTATE
     Route: 042
     Dates: start: 20221202, end: 20221202
  10. ademetionine 1,4-butanedisofulnate [Concomitant]
     Route: 048
     Dates: start: 20221202, end: 20221202
  11. HYDROTALCITE [Concomitant]
     Active Substance: HYDROTALCITE
     Route: 048
     Dates: start: 20220927

REACTIONS (1)
  - Hypertension [Recovered/Resolved]

NARRATIVE: CASE EVENT DATE: 20221203
